FAERS Safety Report 13017229 (Version 1)
Quarter: 2016Q4

REPORT INFORMATION
  Report Type: Spontaneous
  Country: FR (occurrence: FR)
  Receive Date: 20161212
  Receipt Date: 20161212
  Transmission Date: 20170207
  Serious: Yes (Other)
  Sender: FDA-Public Use
  Company Number: FR-PFIZER INC-2016564993

PATIENT
  Age: 67 Year
  Sex: Female

DRUGS (6)
  1. LEVOTHYROX [Concomitant]
     Active Substance: LEVOTHYROXINE
  2. IZALGI [Concomitant]
     Active Substance: ACETAMINOPHEN\OPIUM
  3. MICARDIS [Concomitant]
     Active Substance: TELMISARTAN
     Dosage: UNK
  4. ALDACTONE [Suspect]
     Active Substance: SPIRONOLACTONE
     Indication: OBESITY
     Dosage: 50 MG, 1X/DAY
     Route: 048
     Dates: start: 20160914
  5. XENICAL [Suspect]
     Active Substance: ORLISTAT
     Indication: OBESITY
     Dosage: 360 MG, DAILY
     Route: 048
     Dates: start: 20160914
  6. ZYMAD [Concomitant]
     Active Substance: CHOLECALCIFEROL

REACTIONS (7)
  - Hepatomegaly [Unknown]
  - Cholelithiasis [Unknown]
  - Nausea [Unknown]
  - Hepatocellular injury [Unknown]
  - Hepatic steatosis [Unknown]
  - Abdominal pain [Unknown]
  - Cholestasis [Unknown]

NARRATIVE: CASE EVENT DATE: 201610
